FAERS Safety Report 11450774 (Version 1)
Quarter: 2015Q3

REPORT INFORMATION
  Report Type: Spontaneous
  Country: US (occurrence: US)
  Receive Date: 20150903
  Receipt Date: 20150903
  Transmission Date: 20151125
  Serious: Yes (Disabling)
  Sender: FDA-Public Use
  Company Number: US-ROCHE-1048872

PATIENT
  Sex: Female

DRUGS (3)
  1. INCIVEK [Concomitant]
     Active Substance: TELAPREVIR
     Route: 065
     Dates: start: 20120109
  2. RIBASPHERE [Concomitant]
     Active Substance: RIBAVIRIN
     Route: 065
     Dates: start: 20120104
  3. PEGASYS [Suspect]
     Active Substance: PEGINTERFERON ALFA-2A
     Indication: HEPATITIS C
     Route: 058
     Dates: start: 20120104, end: 20120120

REACTIONS (1)
  - Depression [Unknown]
